FAERS Safety Report 9112914 (Version 3)
Quarter: 2013Q1

REPORT INFORMATION
  Report Type: Spontaneous
  Country: GB (occurrence: GB)
  Receive Date: 20130211
  Receipt Date: 20130307
  Transmission Date: 20140127
  Serious: Yes (Hospitalization, Disabling)
  Sender: FDA-Public Use
  Company Number: GB-ALEXION PHARMACEUTICALS INC.-A201300212

PATIENT
  Age: 41 None
  Sex: Male

DRUGS (1)
  1. SOLIRIS 300MG [Suspect]
     Indication: PAROXYSMAL NOCTURNAL HAEMOGLOBINURIA
     Dosage: 900 MG, Q2W
     Route: 042
     Dates: start: 201210

REACTIONS (4)
  - Pharyngitis [Recovering/Resolving]
  - Tongue ulceration [Recovering/Resolving]
  - Groin infection [Recovering/Resolving]
  - Unevaluable event [Unknown]
